FAERS Safety Report 12180984 (Version 1)
Quarter: 2016Q1

REPORT INFORMATION
  Report Type: Spontaneous
  Country: TR (occurrence: TR)
  Receive Date: 20160315
  Receipt Date: 20160315
  Transmission Date: 20160526
  Serious: Yes (Hospitalization)
  Sender: FDA-Public Use
  Company Number: TR-BAYER-2015-038023

PATIENT
  Sex: Female

DRUGS (1)
  1. YAZZ 24+4 [Suspect]
     Active Substance: DROSPIRENONE\ETHINYL ESTRADIOL
     Route: 048

REACTIONS (4)
  - Abdominal pain [Recovered/Resolved]
  - Drug dose omission [None]
  - Metrorrhagia [Recovered/Resolved]
  - Abnormal withdrawal bleeding [None]
